FAERS Safety Report 17296282 (Version 1)
Quarter: 2020Q1

REPORT INFORMATION
  Report Type: Spontaneous
  Country: US (occurrence: US)
  Receive Date: 20200121
  Receipt Date: 20200121
  Transmission Date: 20200409
  Serious: No
  Sender: FDA-Public Use
  Company Number: US-CURIUM-199200006

PATIENT
  Age: 32 Year
  Sex: Male

DRUGS (1)
  1. TECHNESCAN PYP [Suspect]
     Active Substance: TECHNETIUM TC-99M PYROPHOSPHATE
     Indication: MULTIPLE GATED ACQUISITION SCAN
     Route: 065

REACTIONS (5)
  - Feeling abnormal [Unknown]
  - Cold sweat [Unknown]
  - Tachycardia [Unknown]
  - Muscular weakness [Unknown]
  - Hypotension [Unknown]
